FAERS Safety Report 4311768-7 (Version None)
Quarter: 2004Q1

REPORT INFORMATION
  Report Type: 
  Country: None (occurrence: None)
  Receive Date: 20040304
  Receipt Date: 20040304
  Transmission Date: 20041129
  Serious: Yes (Disabling)
  Sender: FDA-Public Use
  Company Number: None

PATIENT
  Age: 49 Year
  Sex: Female
  Weight: 81.6475 kg

DRUGS (2)
  1. ZICAM [Suspect]
     Indication: NASOPHARYNGITIS
     Dosage: 1 SPRAY IN EACH MASAL
     Route: 045
     Dates: start: 20031224, end: 20031224
  2. NYQUIL CAPSULES [Concomitant]

REACTIONS (5)
  - DEPRESSION [None]
  - DYSPNOEA [None]
  - NASAL CONGESTION [None]
  - PANIC REACTION [None]
  - WEIGHT DECREASED [None]
